FAERS Safety Report 6068498-3 (Version None)
Quarter: 2009Q1

REPORT INFORMATION
  Report Type: 
  Country: None (occurrence: None)
  Receive Date: 20090206
  Receipt Date: 20090127
  Transmission Date: 20090719
  Serious: Yes (Other)
  Sender: FDA-Public Use
  Company Number: JP-PFIZER INC-2009158832

PATIENT

DRUGS (1)
  1. NORVASC [Suspect]
     Dosage: 2.5 MG, 1X/DAY
     Route: 048
     Dates: start: 19980101, end: 20090101

REACTIONS (3)
  - MYELODYSPLASTIC SYNDROME [None]
  - RED BLOOD CELL COUNT DECREASED [None]
  - WHITE BLOOD CELL COUNT DECREASED [None]
